FAERS Safety Report 8934260 (Version 1)
Quarter: 2012Q4

REPORT INFORMATION
  Report Type: 
  Country: FR (occurrence: FR)
  Receive Date: 20121129
  Receipt Date: 20121129
  Transmission Date: 20130627
  Serious: Yes (Hospitalization)
  Sender: FDA-Public Use
  Company Number: FR-PFIZER INC-2012294444

PATIENT
  Age: 83 Year
  Sex: Female

DRUGS (12)
  1. ALDACTONE [Suspect]
     Dosage: 25 mg, 1x/day
     Route: 048
     Dates: end: 20120831
  2. DEROXAT [Suspect]
     Dosage: 10 mg, 1x/day
     Route: 048
     Dates: end: 20120831
  3. MICARDIS [Suspect]
     Dosage: 80 mg, 1x/day
     Route: 048
     Dates: end: 20120831
  4. LASILIX [Suspect]
     Dosage: 80 mg, 1x/day
     Route: 048
     Dates: end: 20120831
  5. DIAMICRON [Suspect]
     Dosage: 120 mg, 1x/day
     Route: 048
     Dates: end: 20120831
  6. LANTUS [Concomitant]
     Dosage: UNK
  7. LEVOTHYROX [Concomitant]
     Dosage: UNK
  8. ZYLORIC [Concomitant]
     Dosage: UNK
  9. INEGY [Concomitant]
     Dosage: UNK
  10. PARIET [Concomitant]
     Dosage: UNK
  11. KALEORID [Concomitant]
     Dosage: UNK
  12. TARDYFERON [Concomitant]
     Dosage: UNK

REACTIONS (3)
  - Hypoglycaemia [Recovered/Resolved]
  - Orthostatic hypotension [Recovered/Resolved]
  - Fall [Recovered/Resolved]
